FAERS Safety Report 5754816-X (Version None)
Quarter: 2008Q2

REPORT INFORMATION
  Report Type: 
  Country: None (occurrence: None)
  Receive Date: 20080523
  Receipt Date: 20080512
  Transmission Date: 20081010
  Serious: Yes (Death)
  Sender: FDA-Public Use
  Company Number: CERZ-1000202

PATIENT
  Age: 27 Month
  Sex: Female
  Weight: 8.9 kg

DRUGS (1)
  1. CEREZYME [Suspect]
     Indication: GAUCHER'S DISEASE
     Dosage: 400 U, INTRAVENOUS
     Route: 042
     Dates: start: 20061120, end: 20080211

REACTIONS (4)
  - APNOEA [None]
  - DISEASE PROGRESSION [None]
  - GAUCHER'S DISEASE [None]
  - NEUROLOGICAL SYMPTOM [None]
